FAERS Safety Report 5822681-8 (Version None)
Quarter: 2008Q3

REPORT INFORMATION
  Report Type: 
  Country: None (occurrence: None)
  Receive Date: 20080725
  Receipt Date: 20080724
  Transmission Date: 20090109
  Serious: Yes (Hospitalization, Other)
  Sender: FDA-Public Use
  Company Number: DE-BAYER-200410808BVD

PATIENT
  Age: 79 Year
  Sex: Female
  Weight: 56 kg

DRUGS (2)
  1. AVELOX [Suspect]
     Indication: BRONCHITIS
     Route: 048
     Dates: start: 20040730, end: 20040803
  2. AVELOX [Suspect]
     Route: 048
     Dates: start: 20040805, end: 20040811

REACTIONS (2)
  - TEMPORAL ARTERITIS [None]
  - VISUAL IMPAIRMENT [None]
